FAERS Safety Report 6301591-6 (Version None)
Quarter: 2009Q3

REPORT INFORMATION
  Report Type: 
  Country: None (occurrence: None)
  Receive Date: 20090807
  Receipt Date: 20090804
  Transmission Date: 20100115
  Serious: Yes (Life-Threatening)
  Sender: FDA-Public Use
  Company Number: FR-ASTRAZENECA-2009SE06799

PATIENT
  Age: 22099 Day
  Sex: Male

DRUGS (1)
  1. FOSCAVIR [Suspect]
     Route: 042
     Dates: start: 20081101, end: 20081201

REACTIONS (3)
  - CARDIAC FAILURE [None]
  - MYOCARDIAL INFARCTION [None]
  - SUBCLAVIAN ARTERY THROMBOSIS [None]
